FAERS Safety Report 10966951 (Version 2)
Quarter: 2015Q2

REPORT INFORMATION
  Report Type: Report from Study
  Country: CA (occurrence: CA)
  Receive Date: 20150330
  Receipt Date: 20150421
  Transmission Date: 20150821
  Serious: Yes (Hospitalization)
  Sender: FDA-Public Use
  Company Number: CA-AMGEN-CANSL2015028175

PATIENT
  Age: 68 Year
  Sex: Female
  Weight: 75.9 kg

DRUGS (1)
  1. PROLIA [Suspect]
     Active Substance: DENOSUMAB
     Indication: OSTEOPOROSIS POSTMENOPAUSAL
     Dosage: 60 MG, Q6MO
     Route: 058
     Dates: start: 201203, end: 201209

REACTIONS (2)
  - Malignant melanoma [Unknown]
  - Vulval cancer [Unknown]

NARRATIVE: CASE EVENT DATE: 201502
